FAERS Safety Report 14635121 (Version 1)
Quarter: 2018Q1

REPORT INFORMATION
  Report Type: Report from Study
  Country: DE (occurrence: DE)
  Receive Date: 20180314
  Receipt Date: 20180314
  Transmission Date: 20180509
  Serious: Yes (Hospitalization)
  Sender: FDA-Public Use
  Company Number: DE-ROCHE-2083414

PATIENT
  Age: 69 Year
  Sex: Female

DRUGS (14)
  1. METHOTREXAT [Suspect]
     Active Substance: METHOTREXATE
     Indication: RHEUMATOID ARTHRITIS
     Route: 065
     Dates: start: 20140505
  2. TOCILIZUMAB. [Suspect]
     Active Substance: TOCILIZUMAB
     Route: 058
     Dates: start: 20140805
  3. METHOTREXAT [Suspect]
     Active Substance: METHOTREXATE
     Route: 065
     Dates: start: 20151111
  4. TOCILIZUMAB. [Suspect]
     Active Substance: TOCILIZUMAB
     Indication: RHEUMATOID ARTHRITIS
     Route: 058
     Dates: start: 20140505
  5. METHOTREXAT [Suspect]
     Active Substance: METHOTREXATE
     Route: 065
     Dates: start: 20140805
  6. METHOTREXAT [Suspect]
     Active Substance: METHOTREXATE
     Route: 065
     Dates: start: 20150515
  7. METHOTREXAT [Suspect]
     Active Substance: METHOTREXATE
     Route: 065
     Dates: start: 20160509
  8. TOCILIZUMAB. [Suspect]
     Active Substance: TOCILIZUMAB
     Route: 058
     Dates: start: 20160509
  9. METHOTREXAT [Suspect]
     Active Substance: METHOTREXATE
     Route: 065
     Dates: start: 20170824
  10. TOCILIZUMAB. [Suspect]
     Active Substance: TOCILIZUMAB
     Route: 058
     Dates: start: 20150515
  11. TOCILIZUMAB. [Suspect]
     Active Substance: TOCILIZUMAB
     Route: 058
     Dates: start: 20151111
  12. TOCILIZUMAB. [Suspect]
     Active Substance: TOCILIZUMAB
     Route: 058
     Dates: start: 20141106
  13. TOCILIZUMAB. [Suspect]
     Active Substance: TOCILIZUMAB
     Route: 058
     Dates: start: 20161025
  14. METHOTREXAT [Suspect]
     Active Substance: METHOTREXATE
     Route: 065
     Dates: start: 20161025

REACTIONS (2)
  - Endocarditis [Unknown]
  - Aortic valve incompetence [Unknown]

NARRATIVE: CASE EVENT DATE: 20170515
